FAERS Safety Report 6656101-0 (Version None)
Quarter: 2010Q1

REPORT INFORMATION
  Report Type: 
  Country: None (occurrence: None)
  Receive Date: 20100329
  Receipt Date: 20100317
  Transmission Date: 20100710
  Serious: Yes (Other)
  Sender: FDA-Public Use
  Company Number: B0638551A

PATIENT
  Sex: Female

DRUGS (2)
  1. ZELITREX [Suspect]
     Indication: HERPES VIRUS INFECTION
     Dosage: 500MG UNKNOWN
     Route: 048
     Dates: start: 20100101
  2. CORTICOID [Concomitant]
     Indication: MULTIPLE SCLEROSIS
     Route: 042

REACTIONS (1)
  - ACUTE GENERALISED EXANTHEMATOUS PUSTULOSIS [None]
